FAERS Safety Report 5000832-5 (Version None)
Quarter: 2006Q2

REPORT INFORMATION
  Report Type: 
  Country: None (occurrence: None)
  Receive Date: 20060512
  Receipt Date: 20050117
  Transmission Date: 20061013
  Serious: Yes (Hospitalization)
  Sender: FDA-Public Use
  Company Number: US-MERCK-0501USA03024

PATIENT
  Age: 79 Year
  Sex: Male
  Weight: 95 kg

DRUGS (10)
  1. VIOXX [Suspect]
     Indication: KNEE ARTHROPLASTY
     Route: 048
     Dates: start: 20030101, end: 20040901
  2. VIOXX [Suspect]
     Indication: RHEUMATOID ARTHRITIS
     Route: 048
     Dates: start: 20030101, end: 20040901
  3. SYNTHROID [Concomitant]
     Route: 065
  4. TAGAMET [Concomitant]
     Route: 065
  5. IBUPROFEN [Concomitant]
     Route: 065
  6. CENTRUM SILVER [Concomitant]
     Route: 065
  7. EYEVITE [Concomitant]
     Route: 065
  8. SUDAFED [Concomitant]
     Route: 065
  9. GUAIFENESIN [Concomitant]
     Route: 065
  10. LESCOL [Suspect]
     Route: 065
     Dates: end: 20041001

REACTIONS (11)
  - CEREBROVASCULAR DISORDER [None]
  - DEPRESSION [None]
  - DIZZINESS [None]
  - FATIGUE [None]
  - HERNIA [None]
  - HYPERCHOLESTEROLAEMIA [None]
  - LABYRINTHITIS [None]
  - LACUNAR INFARCTION [None]
  - MYALGIA [None]
  - SINUSITIS [None]
  - VERTIGO [None]
